FAERS Safety Report 12174411 (Version 3)
Quarter: 2017Q1

REPORT INFORMATION
  Report Type: Report from Study
  Country: GB (occurrence: GB)
  Receive Date: 20160313
  Receipt Date: 20170310
  Transmission Date: 20170428
  Serious: Yes (Hospitalization, Other)
  Sender: FDA-Public Use
  Company Number: GB-AMGEN-GBRSL2016029006

PATIENT
  Sex: Female

DRUGS (1)
  1. ARANESP [Suspect]
     Active Substance: DARBEPOETIN ALFA
     Indication: PRODUCT USED FOR UNKNOWN INDICATION
     Dosage: 30 MUG, UNK
     Route: 065

REACTIONS (8)
  - Cardiac disorder [Unknown]
  - Cardiac failure [Unknown]
  - Renal impairment [Unknown]
  - Blood pressure decreased [Unknown]
  - Fall [Unknown]
  - Pelvic fracture [Unknown]
  - Renal failure [Unknown]
  - Body temperature decreased [Unknown]
